FAERS Safety Report 25986620 (Version 1)
Quarter: 2025Q4

REPORT INFORMATION
  Report Type: Spontaneous
  Country: US (occurrence: US)
  Receive Date: 20251102
  Receipt Date: 20251102
  Transmission Date: 20260118
  Serious: No
  Sender: ELI LILLY AND COMPANY
  Company Number: US-ELI_LILLY_AND_COMPANY-US202510021348

PATIENT
  Sex: Female

DRUGS (1)
  1. MOUNJARO [Suspect]
     Active Substance: TIRZEPATIDE
     Indication: Product used for unknown indication
     Dosage: UNK UNK, UNKNOWN
     Route: 065

REACTIONS (9)
  - Telangiectasia [Recovered/Resolved]
  - Pain [Recovered/Resolved]
  - Arthralgia [Recovered/Resolved]
  - Pain of skin [Recovered/Resolved]
  - Swelling [Recovered/Resolved]
  - Neck pain [Recovered/Resolved]
  - Contusion [Recovered/Resolved]
  - Skin swelling [Recovered/Resolved]
  - Headache [Recovered/Resolved]
